FAERS Safety Report 10230606 (Version 2)
Quarter: 2014Q2

REPORT INFORMATION
  Report Type: Spontaneous
  Country: CA (occurrence: CA)
  Receive Date: 20140611
  Receipt Date: 20140611
  Transmission Date: 20141212
  Serious: Yes (Hospitalization)
  Sender: FDA-Public Use
  Company Number: CA-MYLANLABS-2014S1012634

PATIENT
  Sex: Female

DRUGS (1)
  1. EPIPEN [Suspect]
     Indication: HYPERSENSITIVITY

REACTIONS (1)
  - Device failure [Recovered/Resolved]
